FAERS Safety Report 10055231 (Version 1)
Quarter: 2014Q2

REPORT INFORMATION
  Report Type: Spontaneous
  Country: CA (occurrence: CA)
  Receive Date: 20140403
  Receipt Date: 20140403
  Transmission Date: 20141212
  Serious: Yes (Hospitalization)
  Sender: FDA-Public Use
  Company Number: CA-PFIZER INC-2014089835

PATIENT
  Age: 80 Year
  Sex: Female

DRUGS (6)
  1. SOMAVERT [Suspect]
     Indication: ACROMEGALY
     Dosage: 30 MG, 1X/DAY
  2. SANDOSTATIN LAR [Concomitant]
     Dosage: 30 MG, EVERY 21 DAYS
  3. METFORMIN [Concomitant]
     Dosage: 500 MG, 2X/DAY
  4. IRBESARTAN [Concomitant]
     Dosage: 300 MG, 1X/DAY
  5. APO-PANTOLOC [Concomitant]
     Dosage: 40 MG, 1X/DAY
  6. ELAVIL [Concomitant]
     Dosage: 25MG X 2 AT BEDTIME

REACTIONS (2)
  - Urinary tract infection [Unknown]
  - Abdominal pain [Unknown]
